FAERS Safety Report 9799497 (Version 1)
Quarter: 2014Q1

REPORT INFORMATION
  Report Type: Other
  Country: GB (occurrence: GB)
  Receive Date: 20140106
  Receipt Date: 20140106
  Transmission Date: 20141002
  Serious: Yes (Hospitalization)
  Sender: FDA-Public Use
  Company Number: GB-TAKEDA-2013TJP004324

PATIENT
  Sex: 0

DRUGS (9)
  1. LANSOPRAZOLE [Suspect]
     Indication: PRODUCT USED FOR UNKNOWN INDICATION
     Dosage: 500 MG, TID
     Route: 048
     Dates: start: 20110804, end: 20110811
  2. AMOXICILLIN [Suspect]
     Indication: PRODUCT USED FOR UNKNOWN INDICATION
     Dosage: 500 MG, TID
     Route: 048
     Dates: start: 20110804, end: 20110811
  3. TRIMETHOPRIM [Suspect]
     Indication: PRODUCT USED FOR UNKNOWN INDICATION
     Dosage: 200 MG, UNK
     Route: 048
     Dates: start: 20111012, end: 20111018
  4. ERTAPENEM [Suspect]
     Indication: GRAM STAIN POSITIVE
     Dosage: 500 MG, UNK
     Route: 042
     Dates: start: 20111018, end: 20111025
  5. METRONIDAZOLE [Suspect]
     Indication: PRODUCT USED FOR UNKNOWN INDICATION
     Dosage: 500 MG, TID
     Route: 042
     Dates: start: 20111111
  6. GENTAMICIN [Suspect]
     Indication: PRODUCT USED FOR UNKNOWN INDICATION
     Dosage: 300 MG, UNK
     Route: 040
     Dates: start: 20111018, end: 20111018
  7. MEROPENEM [Suspect]
     Indication: PRODUCT USED FOR UNKNOWN INDICATION
     Dosage: 1 G, TID, RECEIVED 4 DOSES BETWEEN 2ND AND 3RD NOVEMBER
     Route: 042
     Dates: start: 20111025, end: 20111103
  8. TEICOPLANIN [Suspect]
     Indication: PRODUCT USED FOR UNKNOWN INDICATION
     Dosage: 400 MG, BID
     Route: 042
  9. CO-AMOXICLAV /02043401/ [Suspect]
     Indication: PRODUCT USED FOR UNKNOWN INDICATION
     Dosage: 1.2 G, TID
     Route: 042
     Dates: start: 20111103, end: 20111114

REACTIONS (1)
  - Clostridium difficile infection [Unknown]
